FAERS Safety Report 12612470 (Version 1)
Quarter: 2016Q3

REPORT INFORMATION
  Report Type: Spontaneous
  Country: US (occurrence: US)
  Receive Date: 20160801
  Receipt Date: 20160801
  Transmission Date: 20161109
  Serious: No
  Sender: FDA-Public Use
  Company Number: US-PRINSTON PHARMACEUTICAL INC.-2015PRN00060

PATIENT
  Age: 71 Year
  Sex: Female
  Weight: 46.26 kg

DRUGS (2)
  1. DILTIAZEM. [Concomitant]
     Active Substance: DILTIAZEM
     Dosage: 60 MG, 1X/DAY
     Dates: start: 2002
  2. LOSARTAN POTASSIUM. [Suspect]
     Active Substance: LOSARTAN POTASSIUM
     Indication: TACHYCARDIA
     Dosage: 50 MG, 1X/DAY
     Route: 048
     Dates: start: 20150727, end: 20150731

REACTIONS (11)
  - Pain in extremity [Not Recovered/Not Resolved]
  - Fatigue [Recovering/Resolving]
  - Blood pressure decreased [Unknown]
  - Peripheral swelling [Recovering/Resolving]
  - Chest discomfort [Recovering/Resolving]
  - Abdominal distension [Recovering/Resolving]
  - Dyspnoea [Recovering/Resolving]
  - Fluid retention [Unknown]
  - Muscle spasms [Not Recovered/Not Resolved]
  - Presyncope [Recovering/Resolving]
  - Product substitution issue [Unknown]

NARRATIVE: CASE EVENT DATE: 2015
